FAERS Safety Report 25141267 (Version 1)
Quarter: 2025Q1

REPORT INFORMATION
  Report Type: Report from Study
  Country: CO (occurrence: CO)
  Receive Date: 20250331
  Receipt Date: 20250331
  Transmission Date: 20250409
  Serious: Yes (Hospitalization)
  Sender: MYLAN
  Company Number: CO-VIATRISJAPAN-2024M1046109AA

PATIENT
  Age: 13 Year
  Sex: Male
  Weight: 10.8 kg

DRUGS (11)
  1. CYSTAGON [Suspect]
     Active Substance: CYSTEAMINE BITARTRATE
     Indication: Cystinosis
  2. CYSTEAMINE HYDROCHLORIDE [Suspect]
     Active Substance: CYSTEAMINE HYDROCHLORIDE
     Indication: Cystinosis
     Dosage: 2 GTT DROPS (1 DROP IN BOTH EYES (2 GTT DROPS) EVERY 6 HOURS, (4 TIMES A DAY)
     Dates: start: 20170130
  3. ASCORBIC ACID [Concomitant]
     Active Substance: ASCORBIC ACID
     Dosage: 500 MILLIGRAM, QD (EVERY 24 HOURS)
  4. ERYTHROPOIETIN [Concomitant]
     Active Substance: ERYTHROPOIETIN
     Dosage: 2000 INTERNATION UNIT, 3XW (3 TIMES IN A WEAK)
  5. ENALAPRIL [Concomitant]
     Active Substance: ENALAPRIL
     Dosage: 5 MILLIGRAM, QD (EVERY 24 HOURS)
  6. CALCITRIOL [Concomitant]
     Active Substance: CALCITRIOL
     Dosage: 0.25 MICROGRAM, QD (EVERY 24 HOURS)
  7. POTASSIUM GLUCONATE [Concomitant]
     Active Substance: POTASSIUM GLUCONATE
     Dosage: 15 CUBIC CENTIMETER, QD (EVERY 24 HOURS)
  8. FOLIC ACID [Concomitant]
     Active Substance: FOLIC ACID
     Dosage: 3 MILLIGRAM, QD (1 MG TABLET AT A DOSE OF 3 TABLETS EVERY 24 HOURS)
  9. LEVOTHYROXINE [Concomitant]
     Active Substance: LEVOTHYROXINE
     Indication: Hypothyroidism
     Dosage: 75 MICROGRAM, QD (EVERY 24 HOURS)
  10. POTASSIUM CITRATE [Concomitant]
     Active Substance: POTASSIUM CITRATE
     Dosage: 5 CC, BID (TWO TIMES A DAY)
  11. SODIUM BICARBONATE [Concomitant]
     Active Substance: SODIUM BICARBONATE

REACTIONS (3)
  - Paraesthesia [Recovering/Resolving]
  - Hypocalcaemia [Recovering/Resolving]
  - Hypoaesthesia [Recovering/Resolving]

NARRATIVE: CASE EVENT DATE: 20240321
